FAERS Safety Report 8135584-3 (Version None)
Quarter: 2012Q1

REPORT INFORMATION
  Report Type: 
  Country: None (occurrence: None)
  Receive Date: 20120214
  Receipt Date: 20120130
  Transmission Date: 20120608
  Serious: Yes (Hospitalization)
  Sender: FDA-Public Use
  Company Number: PHHY2012PL009649

PATIENT
  Age: 55 Year
  Sex: Female

DRUGS (3)
  1. METHYLPREDNISOLONE [Concomitant]
     Dosage: 4 MG-8 MG, DAILY
  2. METHYLPREDNISOLONE [Concomitant]
     Dosage: 1 MG/KG B.W.
  3. DICLOFENAC [Suspect]
     Indication: RHEUMATOID ARTHRITIS

REACTIONS (26)
  - UPPER GASTROINTESTINAL HAEMORRHAGE [None]
  - ABDOMINAL PAIN LOWER [None]
  - NORMOCHROMIC NORMOCYTIC ANAEMIA [None]
  - DISORIENTATION [None]
  - BLOOD LACTATE DEHYDROGENASE INCREASED [None]
  - FACTOR XI DEFICIENCY [None]
  - ACQUIRED HAEMOPHILIA [None]
  - COAGULATION TIME PROLONGED [None]
  - HAEMATOMA [None]
  - EXTRAVASATION BLOOD [None]
  - BLOOD BILIRUBIN INCREASED [None]
  - HAEMORRHAGE SUBCUTANEOUS [None]
  - ACTIVATED PARTIAL THROMBOPLASTIN TIME PROLONGED [None]
  - BLOOD FIBRINOGEN DECREASED [None]
  - MELAENA [None]
  - BLOOD PRESSURE DECREASED [None]
  - FACTOR IX DEFICIENCY [None]
  - ANAEMIA [None]
  - HAEMORRHAGE [None]
  - FACTOR VIII DEFICIENCY [None]
  - FACTOR XII DEFICIENCY [None]
  - BLOOD LACTATE DEHYDROGENASE DECREASED [None]
  - RETICULOCYTOSIS [None]
  - HAEMORRHAGIC DIATHESIS [None]
  - PLATELET COUNT DECREASED [None]
  - FIBRIN D DIMER INCREASED [None]
